FAERS Safety Report 6396596-3 (Version None)
Quarter: 2009Q4

REPORT INFORMATION
  Report Type: 
  Country: None (occurrence: None)
  Receive Date: 20091012
  Receipt Date: 20091001
  Transmission Date: 20100525
  Serious: Yes (Hospitalization, Other)
  Sender: FDA-Public Use
  Company Number: GB-BRISTOL-MYERS SQUIBB COMPANY-14811129

PATIENT
  Age: 42 Year
  Sex: Female

DRUGS (6)
  1. METFORMIN HCL [Suspect]
  2. DICLOFENAC SODIUM [Suspect]
  3. NORTRIPTYLINE [Suspect]
  4. ACETAMINOPHEN WITH PROPOXYPHENE HCL TAB [Suspect]
  5. RIZATRIPTAN BENZOATE [Suspect]
  6. TEMAZEPAM [Suspect]

REACTIONS (7)
  - DIARRHOEA [None]
  - DUODENAL ULCER [None]
  - GASTRITIS [None]
  - GASTROINTESTINAL DISORDER [None]
  - REFLUX OESOPHAGITIS [None]
  - VOMITING [None]
  - WEIGHT DECREASED [None]
